FAERS Safety Report 8394622 (Version 3)
Quarter: 2012Q4

REPORT INFORMATION
  Report Type: 
  Country: US (occurrence: US)
  Receive Date: 20120207
  Receipt Date: 20121011
  Transmission Date: 20130627
  Serious: Yes (Other)
  Sender: FDA-Public Use
  Company Number: PHEH2012US002830

PATIENT
  Sex: Female

DRUGS (1)
  1. AREDIA [Suspect]
     Route: 042

REACTIONS (6)
  - Foot deformity [Unknown]
  - Hyperkeratosis [Unknown]
  - Duodenal ulcer [Unknown]
  - Facet joint syndrome [Unknown]
  - Osteosclerosis [Unknown]
  - Haemangioma [Unknown]
